FAERS Safety Report 8075524-9 (Version None)
Quarter: 2012Q1

REPORT INFORMATION
  Report Type: 
  Country: None (occurrence: None)
  Receive Date: 20120127
  Receipt Date: 20120118
  Transmission Date: 20120608
  Serious: Yes (Other)
  Sender: FDA-Public Use
  Company Number: DE-PFIZER INC-2012010146

PATIENT
  Age: 87 Year
  Sex: Female
  Weight: 66 kg

DRUGS (4)
  1. AMANTADINE HCL [Concomitant]
     Indication: PARKINSON'S DISEASE
     Dosage: UNK
     Route: 048
     Dates: start: 20110601, end: 20120101
  2. DOXEPIN [Concomitant]
     Indication: SLEEP DISORDER
     Dosage: UNK
     Route: 048
     Dates: start: 20050901, end: 20120101
  3. MCP ^ALIUD PHARMA^ [Concomitant]
     Indication: NAUSEA
  4. CELEBREX [Suspect]
     Indication: PAIN
     Dosage: 200 MG, 1X/DAY
     Route: 048
     Dates: start: 20110901, end: 20120101

REACTIONS (1)
  - HALLUCINATION [None]
